FAERS Safety Report 13287577 (Version 1)
Quarter: 2017Q1

REPORT INFORMATION
  Report Type: Spontaneous
  Country: FR (occurrence: FR)
  Receive Date: 20170302
  Receipt Date: 20170302
  Transmission Date: 20170428
  Serious: Yes (Hospitalization)
  Sender: FDA-Public Use
  Company Number: FR-PFIZER INC-2017080212

PATIENT
  Age: 92 Year
  Sex: Female

DRUGS (11)
  1. FUROSEMIDE. [Concomitant]
     Active Substance: FUROSEMIDE
  2. SPECIAFOLDINE [Concomitant]
     Active Substance: FOLIC ACID
  3. LOXEN /00639802/ [Concomitant]
     Active Substance: NICARDIPINE
  4. SEROPLEX [Concomitant]
     Active Substance: ESCITALOPRAM OXALATE
  5. VANCOMYCINE [Suspect]
     Active Substance: VANCOMYCIN
     Dosage: 500 MG, 4X/DAY
     Route: 042
     Dates: start: 20170201
  6. CLOPIDOGREL [Concomitant]
     Active Substance: CLOPIDOGREL BISULFATE
  7. LEVOTHYROX [Concomitant]
     Active Substance: LEVOTHYROXINE
  8. ESOMEPRAZOLE [Concomitant]
     Active Substance: ESOMEPRAZOLE
  9. PREVNAR 13 [Suspect]
     Active Substance: PNEUMOCOCCAL 13-VALENT CONJUGATE VACCINE
     Indication: IMMUNISATION
     Dosage: 0.5 ML, SINGLE
     Route: 030
     Dates: start: 20170208, end: 20170208
  10. TAMIFLU [Concomitant]
     Active Substance: OSELTAMIVIR PHOSPHATE
     Dosage: UNK
     Dates: start: 20170201, end: 20170203
  11. X PREP /00571901/ [Concomitant]
     Dosage: UNK
     Dates: start: 20170206, end: 20170207

REACTIONS (1)
  - Rash generalised [Recovered/Resolved]

NARRATIVE: CASE EVENT DATE: 20170209
